FAERS Safety Report 9031097 (Version 1)
Quarter: 2013Q1

REPORT INFORMATION
  Report Type: Spontaneous
  Country: ES (occurrence: ES)
  Receive Date: 20130123
  Receipt Date: 20130123
  Transmission Date: 20140127
  Serious: Yes (Other)
  Sender: FDA-Public Use
  Company Number: ES-PFIZER INC-2013023633

PATIENT
  Age: 63 Year
  Sex: Male

DRUGS (6)
  1. TAZOCEL [Suspect]
     Indication: CHRONIC OBSTRUCTIVE PULMONARY DISEASE
     Dosage: 4 G, 4X/DAY
     Route: 042
     Dates: start: 20090509, end: 20090527
  2. FLUCONAZOLE [Suspect]
     Indication: SYSTEMIC CANDIDA
     Dosage: 400 MG, 1X/DAY
     Route: 048
     Dates: start: 20090527, end: 20090602
  3. PANTOPRAZOL [Concomitant]
     Indication: PROPHYLAXIS
     Dosage: 40 MG, 1X/DAY
     Route: 042
     Dates: start: 20090513, end: 20090527
  4. AMBROXOL [Concomitant]
     Dosage: UNK
     Route: 055
     Dates: start: 20090509, end: 20090522
  5. CLARITHROMYCIN [Concomitant]
     Indication: CHRONIC OBSTRUCTIVE PULMONARY DISEASE
     Dosage: 500 MG, 2X/DAY
     Route: 048
     Dates: start: 20090509, end: 20090512
  6. PARACETAMOL [Concomitant]
     Indication: PAIN
     Dosage: 1 %, 3X/DAY
     Route: 042
     Dates: start: 20090513, end: 20090602

REACTIONS (1)
  - Drug reaction with eosinophilia and systemic symptoms [Recovered/Resolved]
